FAERS Safety Report 6596796-3 (Version None)
Quarter: 2010Q1

REPORT INFORMATION
  Report Type: 
  Country: None (occurrence: None)
  Receive Date: 20100219
  Receipt Date: 20100219
  Transmission Date: 20100710
  Serious: Yes (Other)
  Sender: FDA-Public Use
  Company Number: None

PATIENT
  Sex: Female
  Weight: 63.6 kg

DRUGS (1)
  1. BONIVA [Suspect]
     Indication: OSTEOPENIA
     Dates: start: 20090501, end: 20091101

REACTIONS (13)
  - ABASIA [None]
  - ARTHRALGIA [None]
  - BACK PAIN [None]
  - BONE PAIN [None]
  - DYSPEPSIA [None]
  - HAEMOGLOBIN DECREASED [None]
  - INSOMNIA [None]
  - NEURITIS [None]
  - PAIN IN EXTREMITY [None]
  - PAIN IN JAW [None]
  - QUALITY OF LIFE DECREASED [None]
  - SENSITIVITY OF TEETH [None]
  - TOOTHACHE [None]
